FAERS Safety Report 11629086 (Version 1)
Quarter: 2015Q4

REPORT INFORMATION
  Report Type: Spontaneous
  Country: US (occurrence: None)
  Receive Date: 20151013
  Receipt Date: 20151013
  Transmission Date: 20160304
  Serious: Yes (Other)
  Sender: FDA-Public Use
  Company Number: None

PATIENT
  Age: 53 Year
  Sex: Male

DRUGS (1)
  1. HUMIRA [Suspect]
     Active Substance: ADALIMUMAB
     Indication: ANKYLOSING SPONDYLITIS
     Route: 058
     Dates: start: 20150903

REACTIONS (4)
  - Inappropriate schedule of drug administration [None]
  - Headache [None]
  - Tooth abscess [None]
  - Chest discomfort [None]

NARRATIVE: CASE EVENT DATE: 20151006
